FAERS Safety Report 6070309-7 (Version None)
Quarter: 2009Q1

REPORT INFORMATION
  Report Type: 
  Country: None (occurrence: None)
  Receive Date: 20090209
  Receipt Date: 20090109
  Transmission Date: 20090719
  Serious: No
  Sender: FDA-Public Use
  Company Number: US-BAYER-200838790NA

PATIENT
  Age: 69 Year
  Sex: Female

DRUGS (11)
  1. AVELOX [Suspect]
     Indication: UPPER RESPIRATORY TRACT INFECTION
     Dosage: TOTAL DAILY DOSE: 400 MG  UNIT DOSE: 400 MG
     Dates: start: 20081001
  2. AVELOX [Suspect]
     Dosage: TOTAL DAILY DOSE: 400 MG  UNIT DOSE: 400 MG
     Dates: start: 20080101
  3. WELCHOL [Concomitant]
  4. PRAVACHOL [Concomitant]
  5. LISINOPRIL [Concomitant]
  6. HYDROCHLOROTHIAZIDE [Concomitant]
  7. ASPIRIN [Concomitant]
  8. COQ10 [Concomitant]
  9. POLICOSANOL [Concomitant]
  10. NEXIUM [Concomitant]
  11. FOSAMAX [Concomitant]

REACTIONS (5)
  - EAR DISCOMFORT [None]
  - EAR PRURITUS [None]
  - EYE IRRITATION [None]
  - EYE PRURITUS [None]
  - EYE SWELLING [None]
